FAERS Safety Report 5678179-3 (Version None)
Quarter: 2008Q1

REPORT INFORMATION
  Report Type: 
  Country: None (occurrence: None)
  Receive Date: 20080325
  Receipt Date: 20080317
  Transmission Date: 20080703
  Serious: Yes (Hospitalization)
  Sender: FDA-Public Use
  Company Number: FR-WYE-G01256308

PATIENT
  Sex: Male
  Weight: 8 kg

DRUGS (3)
  1. ADVIL [Suspect]
     Indication: PYREXIA
     Route: 048
     Dates: start: 20080108, end: 20080109
  2. ORELOX [Concomitant]
     Indication: EAR INFECTION
     Dosage: UNKNOWN
     Route: 048
     Dates: start: 20080108
  3. DOLIPRANE [Suspect]
     Indication: PYREXIA
     Route: 048
     Dates: start: 20080108, end: 20080109

REACTIONS (1)
  - HYPOTHERMIA [None]
